FAERS Safety Report 14884560 (Version 1)
Quarter: 2018Q2

REPORT INFORMATION
  Report Type: Spontaneous
  Country: NL (occurrence: NL)
  Receive Date: 20180511
  Receipt Date: 20180511
  Transmission Date: 20180711
  Serious: Yes (Other)
  Sender: FDA-Public Use
  Company Number: NL-BAUSCH-BL-2018-013010

PATIENT
  Age: 69 Year
  Sex: Female

DRUGS (1)
  1. IPRATROPIUM BROMIDE. [Suspect]
     Active Substance: IPRATROPIUM BROMIDE
     Indication: CHRONIC OBSTRUCTIVE PULMONARY DISEASE
     Dosage: 1 DOSAGE FORM PER 6 HOURS
     Route: 050
     Dates: start: 20180108, end: 20180118

REACTIONS (3)
  - Epistaxis [Recovered/Resolved]
  - Therapeutic response unexpected [Unknown]
  - Haemoptysis [Recovered/Resolved]

NARRATIVE: CASE EVENT DATE: 20180108
